FAERS Safety Report 9789147 (Version 2)
Quarter: 2014Q2

REPORT INFORMATION
  Report Type: Spontaneous
  Country: US (occurrence: US)
  Receive Date: 20131230
  Receipt Date: 20140530
  Transmission Date: 20141212
  Serious: No
  Sender: FDA-Public Use
  Company Number: US-009507513-1312USA009814

PATIENT
  Sex: Female
  Weight: 60.77 kg

DRUGS (7)
  1. MIRALAX [Suspect]
     Indication: CONSTIPATION
     Dosage: 17 G, QD
     Route: 048
  2. MIRALAX [Suspect]
     Dosage: 3 TEASPOONS, QOD
     Route: 048
  3. DIOVAN [Concomitant]
     Indication: ATRIAL FIBRILLATION
     Dosage: UNK, UNKNOWN
  4. DIOVAN [Concomitant]
     Indication: HYPERTENSION
  5. CARDIZEM [Concomitant]
     Indication: ATRIAL FIBRILLATION
     Dosage: UNK, UNKNOWN
  6. CARDIZEM [Concomitant]
     Indication: HYPERTENSION
  7. ASPIRIN [Concomitant]
     Indication: PRODUCT USED FOR UNKNOWN INDICATION
     Dosage: UNK, UNKNOWN

REACTIONS (4)
  - Alopecia [Unknown]
  - Incorrect dose administered [Unknown]
  - Incorrect drug administration duration [Unknown]
  - Inappropriate schedule of drug administration [Unknown]
